FAERS Safety Report 22193288 (Version 1)
Quarter: 2023Q2

REPORT INFORMATION
  Report Type: Spontaneous
  Country: US (occurrence: None)
  Receive Date: 20230410
  Receipt Date: 20230410
  Transmission Date: 20230721
  Serious: No
  Sender: FDA-Public Use
  Company Number: None

PATIENT
  Age: 77 Year
  Sex: Female
  Weight: 56.7 kg

DRUGS (1)
  1. ELIQUIS [Suspect]
     Active Substance: APIXABAN
     Indication: Atrial fibrillation
     Dosage: FREQUENCY : TWICE A DAY;?
     Route: 048

REACTIONS (11)
  - Presyncope [None]
  - Dizziness [None]
  - Flank pain [None]
  - Dyspnoea [None]
  - Wheezing [None]
  - Asthenia [None]
  - Gait disturbance [None]
  - Pain in extremity [None]
  - Arthralgia [None]
  - Angina pectoris [None]
  - Dizziness [None]
